FAERS Safety Report 4630977-0 (Version None)
Quarter: 2005Q2

REPORT INFORMATION
  Report Type: 
  Country: None (occurrence: None)
  Receive Date: 20050406
  Receipt Date: 20050406
  Transmission Date: 20051028
  Serious: No
  Sender: FDA-Public Use
  Company Number: None

PATIENT
  Sex: Male
  Weight: 75.45 kg

DRUGS (3)
  1. FLUOROURACIL [Suspect]
     Dosage: 650 MG/M^2 CIV
  2. CISPLATIN [Suspect]
     Dosage: 15 MG/M^2 1-5 + 29-33
  3. PACLITAXEL [Suspect]
     Dosage: 200 MG/M^2 ON DAY 1 + 29

REACTIONS (3)
  - DIARRHOEA [None]
  - ORAL INTAKE REDUCED [None]
  - SYNCOPE [None]
